FAERS Safety Report 22660752 (Version 1)
Quarter: 2023Q2

REPORT INFORMATION
  Report Type: Spontaneous
  Country: NL (occurrence: None)
  Receive Date: 20230630
  Receipt Date: 20230630
  Transmission Date: 20230721
  Serious: Yes (Death)
  Sender: FDA-Public Use
  Company Number: 2023A148083

PATIENT
  Sex: Female

DRUGS (1)
  1. DAPAGLIFLOZIN [Suspect]
     Active Substance: DAPAGLIFLOZIN
     Indication: Cardiac failure
     Dosage: 1X PER DAG 1 STUK
     Dates: start: 20230420, end: 20230421

REACTIONS (5)
  - Diarrhoea [Fatal]
  - Vomiting [Fatal]
  - Malaise [Fatal]
  - Abdominal pain [Fatal]
  - Nausea [Fatal]

NARRATIVE: CASE EVENT DATE: 20230423
